FAERS Safety Report 15798602 (Version 2)
Quarter: 2019Q1

REPORT INFORMATION
  Report Type: Spontaneous
  Country: US (occurrence: US)
  Receive Date: 20190108
  Receipt Date: 20190109
  Transmission Date: 20190417
  Serious: No
  Sender: FDA-Public Use
  Company Number: US-PFIZER INC-2019002396

PATIENT
  Age: 74 Year
  Sex: Female
  Weight: 78.91 kg

DRUGS (1)
  1. AROMASIN [Suspect]
     Active Substance: EXEMESTANE
     Indication: PROPHYLAXIS
     Dosage: 25 MG, DAILY
     Route: 048

REACTIONS (3)
  - Pain [Unknown]
  - Urinary tract infection [Unknown]
  - Burning sensation [Unknown]
